FAERS Safety Report 17121615 (Version 1)
Quarter: 2019Q4

REPORT INFORMATION
  Report Type: Spontaneous
  Country: US (occurrence: US)
  Receive Date: 20191205
  Receipt Date: 20191205
  Transmission Date: 20200122
  Serious: Yes (Disabling)
  Sender: FDA-Public Use
  Company Number: None

PATIENT
  Age: 51 Year
  Sex: Male
  Weight: 157.5 kg

DRUGS (5)
  1. PROVIGIL [Concomitant]
     Active Substance: MODAFINIL
  2. CPAP [Concomitant]
     Active Substance: DEVICE
  3. CIPROFLOXICIN [Suspect]
     Active Substance: CIPROFLOXACIN
     Indication: DIVERTICULITIS INTESTINAL HAEMORRHAGIC
     Route: 042
  4. FEXOFENADENE [Concomitant]
  5. ESOMEPRAZOLE. [Concomitant]
     Active Substance: ESOMEPRAZOLE MAGNESIUM

REACTIONS (3)
  - Bone pain [None]
  - Mobility decreased [None]
  - Neuropathy peripheral [None]

NARRATIVE: CASE EVENT DATE: 20191030
